FAERS Safety Report 17251773 (Version 1)
Quarter: 2020Q1

REPORT INFORMATION
  Report Type: Spontaneous
  Country: CN (occurrence: CN)
  Receive Date: 20200109
  Receipt Date: 20200109
  Transmission Date: 20200409
  Serious: Yes (Other)
  Sender: FDA-Public Use
  Company Number: CN-ELI_LILLY_AND_COMPANY-CN201912014245

PATIENT
  Age: 40 Year
  Sex: Male

DRUGS (2)
  1. OXCARBAZEPINE. [Suspect]
     Active Substance: OXCARBAZEPINE
     Indication: NEUROPATHY PERIPHERAL
     Dosage: 0.15 G, DAILY
     Route: 048
     Dates: start: 20191220, end: 20191224
  2. DULOXETINE HYDROCHLORIDE 30MG LABORATORIOS DR. ESTEVE. S.A. BARCELONA [Suspect]
     Active Substance: DULOXETINE HYDROCHLORIDE
     Indication: NEUROPATHY PERIPHERAL
     Dosage: 30 MG, DAILY
     Route: 048
     Dates: start: 20191220, end: 20191224

REACTIONS (5)
  - Vomiting [Recovering/Resolving]
  - Gastric disorder [Recovering/Resolving]
  - Feeding disorder [Unknown]
  - Abdominal pain [Recovering/Resolving]
  - Nausea [Recovering/Resolving]

NARRATIVE: CASE EVENT DATE: 20191220
